FAERS Safety Report 6790370-1 (Version None)
Quarter: 2010Q2

REPORT INFORMATION
  Report Type: 
  Country: None (occurrence: None)
  Receive Date: 20100624
  Receipt Date: 20100616
  Transmission Date: 20101027
  Serious: Yes (Hospitalization, Other)
  Sender: FDA-Public Use
  Company Number: PHHY2010DE34107

PATIENT
  Age: 78 Year
  Sex: Female

DRUGS (1)
  1. EXELON [Suspect]
     Indication: DEMENTIA ALZHEIMER'S TYPE
     Dosage: 4.6 MG/24 HRS
     Route: 062
     Dates: start: 20090826

REACTIONS (5)
  - CONFUSIONAL STATE [None]
  - CONTUSION [None]
  - DELIRIUM [None]
  - EXCORIATION [None]
  - FALL [None]
